FAERS Safety Report 11378670 (Version 1)
Quarter: 2015Q3

REPORT INFORMATION
  Report Type: Spontaneous
  Country: US (occurrence: None)
  Receive Date: 20150812
  Receipt Date: 20150812
  Transmission Date: 20151125
  Serious: Yes (Hospitalization)
  Sender: FDA-Public Use
  Company Number: None

PATIENT
  Age: 89 Year
  Sex: Male
  Weight: 67.3 kg

DRUGS (1)
  1. FUROSEMIDE. [Suspect]
     Active Substance: FUROSEMIDE
     Indication: OEDEMA
     Dosage: 40-60 MG
     Route: 048
     Dates: start: 20140707, end: 20150421

REACTIONS (5)
  - Dehydration [None]
  - Acute kidney injury [None]
  - Blood creatinine increased [None]
  - Rash [None]
  - Blood urea increased [None]

NARRATIVE: CASE EVENT DATE: 20150421
